FAERS Safety Report 18978855 (Version 2)
Quarter: 2021Q1

REPORT INFORMATION
  Report Type: Spontaneous
  Country: US (occurrence: US)
  Receive Date: 20210308
  Receipt Date: 20210312
  Transmission Date: 20210420
  Serious: No
  Sender: FDA-Public Use
  Company Number: US-AMGEN-USASP2021032934

PATIENT
  Age: 53 Year
  Sex: Female

DRUGS (1)
  1. REPATHA [Suspect]
     Active Substance: EVOLOCUMAB
     Indication: HYPERCHOLESTEROLAEMIA
     Dosage: 140 MILLIGRAM, Q2WK
     Route: 065
     Dates: start: 20210216

REACTIONS (5)
  - Anxiety [Unknown]
  - Accidental exposure to product [Unknown]
  - Nausea [Recovered/Resolved]
  - Vomiting [Unknown]
  - Injection site pain [Unknown]

NARRATIVE: CASE EVENT DATE: 20210216
